FAERS Safety Report 8920052 (Version 1)
Quarter: 2012Q4

REPORT INFORMATION
  Report Type: 
  Country: US (occurrence: US)
  Receive Date: 20121121
  Receipt Date: 20121121
  Transmission Date: 20130627
  Serious: No
  Sender: FDA-Public Use
  Company Number: US-BRISTOL-MYERS SQUIBB COMPANY-16775363

PATIENT
  Age: 63 Year
  Sex: Female

DRUGS (1)
  1. AVALIDE [Suspect]

REACTIONS (7)
  - Gait disturbance [Unknown]
  - Cyst [Unknown]
  - Lipoma [Unknown]
  - Musculoskeletal stiffness [Unknown]
  - Hypertension [Unknown]
  - Back pain [Unknown]
  - Pain [Unknown]
